FAERS Safety Report 17035610 (Version 1)
Quarter: 2019Q4

REPORT INFORMATION
  Report Type: Spontaneous
  Country: GB (occurrence: GB)
  Receive Date: 20191115
  Receipt Date: 20191115
  Transmission Date: 20200122
  Serious: Yes (Other)
  Sender: FDA-Public Use
  Company Number: GB-TEVA-2019-GB-1137310

PATIENT
  Age: 23 Year
  Sex: Female
  Weight: 56 kg

DRUGS (1)
  1. TRIMETHOPRIM. [Suspect]
     Active Substance: TRIMETHOPRIM
     Indication: ACNE
     Dosage: 600 MG
     Route: 048
     Dates: start: 20171116, end: 20171201

REACTIONS (1)
  - Dermatitis allergic [Not Recovered/Not Resolved]

NARRATIVE: CASE EVENT DATE: 20171129
